FAERS Safety Report 20837750 (Version 6)
Quarter: 2022Q3

REPORT INFORMATION
  Report Type: Report from Study
  Country: US (occurrence: US)
  Receive Date: 20220517
  Receipt Date: 20220927
  Transmission Date: 20221026
  Serious: No
  Sender: FDA-Public Use
  Company Number: US-BRISTOL-MYERS SQUIBB COMPANY-2022-034326

PATIENT
  Age: 49 Year
  Sex: Female
  Weight: 87.09 kg

DRUGS (2)
  1. REVLIMID [Suspect]
     Active Substance: LENALIDOMIDE
     Indication: Plasma cell myeloma
     Dosage: DOSE : 10 MG DAILY;     FREQ : EVERY DAY
     Route: 048
     Dates: start: 202109
  2. REVLIMID [Suspect]
     Active Substance: LENALIDOMIDE
     Dosage: 28
     Route: 065

REACTIONS (1)
  - Human chorionic gonadotropin increased [Unknown]

NARRATIVE: CASE EVENT DATE: 20220503
